FAERS Safety Report 6994038-8 (Version None)
Quarter: 2010Q3

REPORT INFORMATION
  Report Type: 
  Country: None (occurrence: None)
  Receive Date: 20100917
  Receipt Date: 20070920
  Transmission Date: 20110219
  Serious: Yes (Other)
  Sender: FDA-Public Use
  Company Number: US-ASTRAZENECA-2007UW18743

PATIENT
  Age: 12799 Day
  Sex: Female

DRUGS (13)
  1. SEROQUEL [Suspect]
     Indication: SLEEP DISORDER
     Dosage: 12.5-200MG
     Route: 048
     Dates: start: 19991213
  2. SEROQUEL [Suspect]
     Indication: TACHYPHRENIA
     Dosage: 12.5-200MG
     Route: 048
     Dates: start: 19991213
  3. SEROQUEL [Suspect]
     Indication: HALLUCINATION, AUDITORY
     Dosage: 12.5-200MG
     Route: 048
     Dates: start: 19991213
  4. SEROQUEL [Suspect]
     Indication: NIGHTMARE
     Dosage: 12.5-200MG
     Route: 048
     Dates: start: 19991213
  5. PAXIL [Concomitant]
     Route: 048
     Dates: start: 19990105
  6. XANAX [Concomitant]
     Dosage: 0.5-5 MG
     Dates: start: 19990105
  7. BUSPAR [Concomitant]
     Route: 048
     Dates: start: 19991213
  8. DILANTIN [Concomitant]
     Dates: start: 20050801
  9. WELLBUTRIN SR [Concomitant]
     Route: 048
     Dates: start: 20020718
  10. REMERON [Concomitant]
     Dosage: 30 MG HALF TAB HS
     Dates: start: 20020703
  11. IMIPRAMINE [Concomitant]
     Dosage: 25-75 MG
     Route: 048
     Dates: start: 20010618
  12. MELLARIL [Concomitant]
     Dosage: 100 MG
     Dates: start: 20020703
  13. AMBIEN [Concomitant]
     Route: 048
     Dates: start: 20010618

REACTIONS (3)
  - DIABETES MELLITUS [None]
  - DIABETES MELLITUS INADEQUATE CONTROL [None]
  - TYPE 2 DIABETES MELLITUS [None]
